FAERS Safety Report 4355857-X (Version None)
Quarter: 2004Q2

REPORT INFORMATION
  Report Type: 
  Country: None (occurrence: None)
  Receive Date: 20040507
  Receipt Date: 20040507
  Transmission Date: 20050107
  Serious: Yes (Life-Threatening)
  Sender: FDA-Public Use
  Company Number: None

PATIENT
  Sex: Male
  Weight: 90.7194 kg

DRUGS (13)
  1. LEXAPRO [Suspect]
     Indication: DEPRESSION
     Dosage: 25 MG DAILY IN A ORAL
     Route: 048
     Dates: start: 20031210, end: 20040506
  2. EFFEXOR XR [Concomitant]
  3. WELLBUTRIN SR [Concomitant]
  4. ARICEPT [Concomitant]
  5. TRAZODONE HCL [Concomitant]
  6. KLONOPIN [Concomitant]
  7. DEXADRINE [Concomitant]
  8. CELEBREX [Concomitant]
  9. NEXIUM [Concomitant]
  10. LIPITOR [Concomitant]
  11. SINGULAIR [Concomitant]
  12. RHINOCORT [Concomitant]
  13. CPAP [Concomitant]

REACTIONS (15)
  - AGITATION [None]
  - ANGER [None]
  - DISCOMFORT [None]
  - DISSOCIATION [None]
  - DRY MOUTH [None]
  - EARLY MORNING AWAKENING [None]
  - FEELING ABNORMAL [None]
  - HOSTILITY [None]
  - IMPATIENCE [None]
  - INSOMNIA [None]
  - IRRITABILITY [None]
  - MEDICATION ERROR [None]
  - NAUSEA [None]
  - SELF INJURIOUS BEHAVIOUR [None]
  - SUICIDAL IDEATION [None]
